FAERS Safety Report 6816123-3 (Version None)
Quarter: 2010Q3

REPORT INFORMATION
  Report Type: 
  Country: None (occurrence: None)
  Receive Date: 20100702
  Receipt Date: 20100702
  Transmission Date: 20110219
  Serious: Yes (Disabling)
  Sender: FDA-Public Use
  Company Number: None

PATIENT
  Sex: Female
  Weight: 81.6475 kg

DRUGS (1)
  1. YAZ [Suspect]
     Indication: MENSTRUATION IRREGULAR
     Dosage: .5MG ONE A DAY PO
     Route: 048
     Dates: start: 20070101, end: 20100531

REACTIONS (2)
  - CHOLECYSTECTOMY [None]
  - GASTRIC DISORDER [None]
